FAERS Safety Report 8141520-6 (Version None)
Quarter: 2012Q1

REPORT INFORMATION
  Report Type: 
  Country: None (occurrence: None)
  Receive Date: 20120216
  Receipt Date: 20120201
  Transmission Date: 20120608
  Serious: Yes (Hospitalization)
  Sender: FDA-Public Use
  Company Number: CH-ROCHE-1036052

PATIENT
  Age: 49 Year
  Sex: Male

DRUGS (6)
  1. BECOZYM [Concomitant]
     Route: 048
     Dates: start: 20120105
  2. BENERVA [Concomitant]
     Dates: start: 20120105
  3. FRAGMIN [Concomitant]
     Dates: start: 20120105
  4. LORAZEPAM [Interacting]
     Indication: ALCOHOL POISONING
     Route: 048
     Dates: start: 20120105, end: 20120105
  5. DOSPIR [Concomitant]
     Dates: start: 20120105
  6. VALIUM [Suspect]
     Indication: ALCOHOL POISONING
     Route: 048
     Dates: start: 20120105, end: 20120105

REACTIONS (3)
  - RESPIRATORY ACIDOSIS [None]
  - LABELLED DRUG-DRUG INTERACTION MEDICATION ERROR [None]
  - RESPIRATORY FAILURE [None]
